FAERS Safety Report 9822700 (Version 2)
Quarter: 2015Q4

REPORT INFORMATION
  Report Type: Spontaneous
  Country: CA (occurrence: CA)
  Receive Date: 20140116
  Receipt Date: 20151012
  Transmission Date: 20160305
  Serious: Yes (Other)
  Sender: FDA-Public Use
  Company Number: CA-ROCHE-1333331

PATIENT
  Sex: Male

DRUGS (3)
  1. SPIRIVA [Concomitant]
     Active Substance: TIOTROPIUM BROMIDE MONOHYDRATE
  2. XOLAIR [Suspect]
     Active Substance: OMALIZUMAB
     Indication: ASTHMA
     Route: 058
     Dates: start: 20130523
  3. ALVESCO [Concomitant]
     Active Substance: CICLESONIDE

REACTIONS (4)
  - Depression [Recovering/Resolving]
  - Injection site pain [Unknown]
  - Cough [Unknown]
  - Pulmonary mass [Unknown]

NARRATIVE: CASE EVENT DATE: 2015
